FAERS Safety Report 24748339 (Version 1)
Quarter: 2024Q4

REPORT INFORMATION
  Report Type: Spontaneous
  Country: GB (occurrence: GB)
  Receive Date: 20241218
  Receipt Date: 20241218
  Transmission Date: 20250115
  Serious: Yes (Other)
  Sender: ACCORD
  Company Number: None

PATIENT
  Age: 71 Year
  Sex: Female
  Weight: 78 kg

DRUGS (12)
  1. EZETIMIBE [Suspect]
     Active Substance: EZETIMIBE
     Indication: Product used for unknown indication
     Dosage: ONE TO BE TAKEN EACH DAY
     Dates: start: 20241031, end: 20241206
  2. ASPIRIN [Concomitant]
     Active Substance: ASPIRIN
     Dosage: ONE TO BE TAKEN EACH MORNING LIFELONG
     Dates: start: 20241028
  3. BISOPROLOL [Concomitant]
     Active Substance: BISOPROLOL
     Dosage: ONE TO BE TAKEN EVERY MORNING
     Dates: start: 20241028
  4. RAMIPRIL [Concomitant]
     Active Substance: RAMIPRIL
     Dosage: ONE TO BE TAKEN EACH MORNING
     Dates: start: 20241028
  5. ROSUVASTATIN [Concomitant]
     Active Substance: ROSUVASTATIN
     Dosage: ONE TO BE TAKEN EACH DAY
     Dates: start: 20241028
  6. PEPPERMINT OIL [Concomitant]
     Active Substance: PEPPERMINT OIL
     Dosage: ONE OR TWO TO BE TAKEN THREE TIMES A DAY BEFORE FOOD
     Dates: start: 20241028
  7. TICAGRELOR [Concomitant]
     Active Substance: TICAGRELOR
     Dosage: ONE TO BE TAKEN TWICE A DAY FOR 12 MONTHS (STOP 22/10/25)
     Dates: start: 20241028
  8. NITROGLYCERIN [Concomitant]
     Active Substance: NITROGLYCERIN
     Dosage: SPRAY ONE OR TWO DOSES UNDER TONGUE AND THEN CLOSE MOUTH AS DIRECTED
     Dates: start: 20241028
  9. LANSOPRAZOLE [Concomitant]
     Active Substance: LANSOPRAZOLE
     Dosage: ONE TO BE TAKEN EACH MORNING
     Dates: start: 20241028
  10. GLYCERIN [Concomitant]
     Active Substance: GLYCERIN
     Dosage: TWICE A DAY
     Dates: start: 20241104
  11. COCODAMOL [Concomitant]
     Active Substance: ACETAMINOPHEN\CODEINE PHOSPHATE
     Dosage: ONE OR TWO TO BE TAKEN FOUR TIMES A DAY WHEN REQUIRED (*CONTAINS PARACETAMOL*)
     Dates: start: 20241128
  12. EZETIMIBE [Concomitant]
     Active Substance: EZETIMIBE
     Dosage: ONE TO BE TAKEN EACH DAY
     Dates: start: 20241028, end: 20241206

REACTIONS (1)
  - Urinary incontinence [Recovered/Resolved]
